FAERS Safety Report 7415959-8 (Version None)
Quarter: 2011Q2

REPORT INFORMATION
  Report Type: 
  Country: None (occurrence: None)
  Receive Date: 20110414
  Receipt Date: 20110405
  Transmission Date: 20111010
  Serious: Yes (Death)
  Sender: FDA-Public Use
  Company Number: GXBR2010US02130

PATIENT
  Sex: Male
  Weight: 90.703 kg

DRUGS (9)
  1. HYDROXYZINE PAMOATE CAPSULES USP [Suspect]
     Indication: ANXIETY
     Dosage: 50 MG, BID
     Route: 048
     Dates: start: 20101021
  2. BUSPIRONE [Suspect]
     Indication: ANXIETY
     Dosage: 15 MG, TID
     Route: 048
     Dates: start: 20091022
  3. MIRTAZAPINE [Suspect]
     Indication: ANXIETY
     Dosage: 30 MG, QHS
     Route: 048
     Dates: start: 20091022
  4. MIRTAZAPINE [Suspect]
     Dosage: 15 MG, QHS
     Route: 048
     Dates: start: 20091022
  5. TRAZODONE [Suspect]
     Indication: ANXIETY
     Dosage: 50 MG, QD2SDO
     Route: 048
     Dates: start: 20100925, end: 20101006
  6. VERAPAMIL [Suspect]
     Indication: HYPERTENSION
     Dosage: 180 MG, BID
     Route: 048
  7. DICYCLOMINE [Concomitant]
     Dosage: 10 MG, QID
     Dates: start: 20101025
  8. GABAPENTIN [Suspect]
     Indication: ANXIETY
     Dosage: 300 MG, TID
     Route: 048
     Dates: start: 20100925, end: 20101005
  9. TRAZODONE [Suspect]
     Dosage: UNK MG, QHS
     Route: 048
     Dates: start: 20101118, end: 20101119

REACTIONS (18)
  - ANXIETY [None]
  - HYPOTONIA [None]
  - CHEST PAIN [None]
  - DECREASED APPETITE [None]
  - RESTLESSNESS [None]
  - COMPLETED SUICIDE [None]
  - DEPRESSION [None]
  - DIARRHOEA [None]
  - HEADACHE [None]
  - IRRITABLE BOWEL SYNDROME [None]
  - WEIGHT DECREASED [None]
  - GASTROINTESTINAL DISORDER [None]
  - FEAR OF WEIGHT GAIN [None]
  - SOMNOLENCE [None]
  - ABDOMINAL PAIN [None]
  - DYSPEPSIA [None]
  - INSOMNIA [None]
  - NAUSEA [None]
